FAERS Safety Report 8821600 (Version 1)
Quarter: 2012Q4

REPORT INFORMATION
  Report Type: Report from Study
  Country: US (occurrence: US)
  Receive Date: 20121002
  Receipt Date: 20121002
  Transmission Date: 20130627
  Serious: No
  Sender: FDA-Public Use
  Company Number: US-VERTEX PHARMACEUTICAL INC.-2012-021009

PATIENT
  Age: 60 Year
  Sex: Male

DRUGS (10)
  1. VX-950 [Suspect]
     Indication: HEPATITIS C
     Dosage: 750 mg, tid
     Route: 048
     Dates: start: 20120712
  2. PEGASYS [Suspect]
     Indication: HEPATITIS C
     Dosage: UNK
     Dates: start: 20120712
  3. RIBAVIRIN [Concomitant]
     Indication: HEPATITIS C
     Dosage: UNK
     Dates: start: 20120712
  4. AMITRIPTYLIN [Concomitant]
  5. CARVEDILOL [Concomitant]
  6. COLCRYS [Concomitant]
  7. GABAPENTIN [Concomitant]
  8. GLIMEPIRIDE [Concomitant]
  9. METFORMIN [Concomitant]
  10. HYDROCO/APAP [Concomitant]

REACTIONS (3)
  - Injection site reaction [Unknown]
  - Fatigue [Not Recovered/Not Resolved]
  - Dysgeusia [Not Recovered/Not Resolved]
